FAERS Safety Report 6243670-8 (Version None)
Quarter: 2009Q2

REPORT INFORMATION
  Report Type: 
  Country: None (occurrence: None)
  Receive Date: 20090624
  Receipt Date: 20090623
  Transmission Date: 20091009
  Serious: Yes (Hospitalization, Other)
  Sender: FDA-Public Use
  Company Number: IT-ROXANE LABORATORIES, INC.-2009-RO-00610RO

PATIENT
  Age: 35 Year
  Sex: Male

DRUGS (10)
  1. CITALOPRAM HYDROBROMIDE [Suspect]
     Dates: start: 19980701
  2. CARBOLITHIUM [Suspect]
     Indication: PSYCHIATRIC SYMPTOM
     Dates: start: 19980701
  3. CARBOLITHIUM [Suspect]
     Dosage: 900 MG
     Dates: start: 20010301
  4. PIMOZIDE [Suspect]
     Dates: start: 19980701
  5. CHLORPROMAZINE [Suspect]
     Dates: start: 19980701
  6. DELORAZEPAM [Suspect]
     Dates: start: 19980701
  7. FENOFIBRATE [Concomitant]
     Indication: HYPERLIPIDAEMIA
     Dosage: 200 MG
     Dates: start: 20080301
  8. N-3 POLYUNSATURATED FATTY ACIDS [Concomitant]
     Indication: HYPERLIPIDAEMIA
     Dosage: 3 G
     Dates: start: 20080601
  9. ORLISTAT [Concomitant]
     Indication: HYPERLIPIDAEMIA
     Dosage: 240 MG
     Dates: start: 20080601
  10. EZETIMIBE [Concomitant]
     Indication: HYPERLIPIDAEMIA
     Dosage: 10 MG
     Dates: start: 20080601

REACTIONS (2)
  - HEPATIC STEATOSIS [None]
  - HYPERLIPIDAEMIA [None]
